FAERS Safety Report 8983075 (Version 1)
Quarter: 2012Q4

REPORT INFORMATION
  Report Type: 
  Country: US (occurrence: US)
  Receive Date: 20121223
  Receipt Date: 20121223
  Transmission Date: 20130627
  Serious: Yes (Other)
  Sender: FDA-Public Use
  Company Number: US-COVIDIEN/TYCO HEALTHCARE/MALLINCKRODT-T201204392

PATIENT

DRUGS (2)
  1. MORPHINE [Suspect]
     Indication: PAIN
     Dosage: 3-5 mcg/kg intraoperatively
     Route: 037
  2. ROPIVACAINE [Suspect]
     Indication: PAIN
     Dosage: 0.1%
     Route: 008

REACTIONS (1)
  - Ileus [Unknown]
